FAERS Safety Report 6418395-6 (Version None)
Quarter: 2009Q4

REPORT INFORMATION
  Report Type: 
  Country: None (occurrence: None)
  Receive Date: 20091021
  Receipt Date: 20090707
  Transmission Date: 20100525
  Serious: No
  Sender: FDA-Public Use
  Company Number: ALL1-2009-01847

PATIENT
  Age: 24 Year
  Sex: Male
  Weight: 76.2 kg

DRUGS (4)
  1. VYVANSE [Suspect]
     Indication: ATTENTION DEFICIT/HYPERACTIVITY DISORDER
     Dosage: 50 MG, 1X/DAY:QD, ORAL
     Route: 048
     Dates: start: 20090702, end: 20090706
  2. CITALOPRAM HYDROBROMIDE [Concomitant]
  3. BACTRIM [Concomitant]
  4. CEPHALEXIN [Concomitant]

REACTIONS (2)
  - FEELING ABNORMAL [None]
  - VISION BLURRED [None]
